FAERS Safety Report 7238155-6 (Version None)
Quarter: 2011Q1

REPORT INFORMATION
  Report Type: 
  Country: None (occurrence: None)
  Receive Date: 20110121
  Receipt Date: 20110112
  Transmission Date: 20110831
  Serious: Yes (Hospitalization)
  Sender: FDA-Public Use
  Company Number: IT-JNJFOC-20110103502

PATIENT
  Sex: Female

DRUGS (4)
  1. SERENASE [Suspect]
     Dosage: 40 GTT FOR DRUG ABUSE
     Route: 048
  2. FLUOXETINA [Concomitant]
     Indication: ILL-DEFINED DISORDER
     Route: 048
  3. SERENASE [Suspect]
     Indication: PSYCHOTIC DISORDER
     Route: 048
  4. DEPAKENE [Concomitant]
     Indication: BIPOLAR DISORDER
     Route: 048

REACTIONS (3)
  - MUSCLE CONTRACTURE [None]
  - DYSTONIA [None]
  - DRUG ABUSE [None]
